FAERS Safety Report 6071825-4 (Version None)
Quarter: 2009Q1

REPORT INFORMATION
  Report Type: 
  Country: None (occurrence: None)
  Receive Date: 20090210
  Receipt Date: 20090203
  Transmission Date: 20090719
  Serious: Yes (Other)
  Sender: FDA-Public Use
  Company Number: PHEH2009US01408

PATIENT
  Sex: Female

DRUGS (3)
  1. TEKTURNA HCT [Suspect]
     Dosage: 150 ALI / 12.5 HCTZ MG
     Dates: start: 20090202
  2. ABILIFY [Interacting]
  3. SULFACET -R [Interacting]

REACTIONS (4)
  - DRUG INTERACTION [None]
  - HEART RATE INCREASED [None]
  - NAUSEA [None]
  - SWELLING FACE [None]
